FAERS Safety Report 8684358 (Version 3)
Quarter: 2012Q4

REPORT INFORMATION
  Report Type: 
  Country: US (occurrence: US)
  Receive Date: 20120726
  Receipt Date: 20121018
  Transmission Date: 20130627
  Serious: Yes (Hospitalization, Other)
  Sender: FDA-Public Use
  Company Number: US-ROCHE-1092019

PATIENT
  Age: 69 Year
  Sex: Female

DRUGS (9)
  1. CELLCEPT [Suspect]
     Indication: CONNECTIVE TISSUE DISORDER
     Route: 048
  2. AMLODIPIN [Concomitant]
     Route: 048
  3. ASPIRIN [Concomitant]
     Route: 048
  4. FUROSEMIDE [Concomitant]
     Route: 065
  5. LEVOTHYROXINE [Concomitant]
     Route: 048
  6. LOSARTAN [Concomitant]
     Route: 048
  7. MAGNESIUM OXIDE [Concomitant]
     Route: 048
  8. GLIPIZIDE [Concomitant]
     Indication: DIABETES MELLITUS
  9. METOPROLOL TARTRATE [Concomitant]
     Route: 048

REACTIONS (2)
  - Cerebrovascular accident [Unknown]
  - Aphasia [Recovered/Resolved]
